FAERS Safety Report 11321342 (Version 1)
Quarter: 2015Q3

REPORT INFORMATION
  Report Type: Spontaneous
  Country: FR (occurrence: FR)
  Receive Date: 20150729
  Receipt Date: 20150729
  Transmission Date: 20151125
  Serious: Yes (Hospitalization)
  Sender: FDA-Public Use
  Company Number: FR-HOSPIRA-2825433

PATIENT
  Age: 75 Year
  Sex: Female

DRUGS (1)
  1. PAXENE                             /01116001/ [Suspect]
     Active Substance: PACLITAXEL
     Indication: BREAST CANCER
     Route: 041
     Dates: start: 20080131, end: 20080229

REACTIONS (6)
  - Constipation [Unknown]
  - Thrombocytopenia [Unknown]
  - Oral candidiasis [Unknown]
  - Conjunctivitis [Unknown]
  - Neutropenia [Unknown]
  - Hand-foot-and-mouth disease [Unknown]

NARRATIVE: CASE EVENT DATE: 20080213
